FAERS Safety Report 24707404 (Version 1)
Quarter: 2024Q4

REPORT INFORMATION
  Report Type: Spontaneous
  Country: US (occurrence: None)
  Receive Date: 20241206
  Receipt Date: 20241206
  Transmission Date: 20250115
  Serious: Yes (Other)
  Sender: Public
  Company Number: None

PATIENT
  Sex: Male

DRUGS (2)
  1. GABAPENTIN [Suspect]
     Active Substance: GABAPENTIN
     Indication: Insomnia
  2. FUROSEMIDE [Concomitant]
     Active Substance: FUROSEMIDE

REACTIONS (10)
  - Headache [None]
  - Eye pain [None]
  - Eye pain [None]
  - Arthralgia [None]
  - Hypoaesthesia [None]
  - Back pain [None]
  - Mitral valve thickening [None]
  - Dyspnoea [None]
  - Myalgia [None]
  - Asthenia [None]
